FAERS Safety Report 11765954 (Version 2)
Quarter: 2016Q1

REPORT INFORMATION
  Report Type: Spontaneous
  Country: GB (occurrence: GB)
  Receive Date: 20151122
  Receipt Date: 20160301
  Transmission Date: 20160525
  Serious: No
  Sender: FDA-Public Use
  Company Number: PHFR2015GB008612

PATIENT

DRUGS (1)
  1. VOTUBIA [Suspect]
     Active Substance: EVEROLIMUS
     Route: 065

REACTIONS (3)
  - Skin haemorrhage [Unknown]
  - Skin lesion [Unknown]
  - Gastrointestinal disorder [Recovered/Resolved]
